FAERS Safety Report 6075512-8 (Version None)
Quarter: 2009Q1

REPORT INFORMATION
  Report Type: 
  Country: None (occurrence: None)
  Receive Date: 20090210
  Receipt Date: 20090210
  Transmission Date: 20090719
  Serious: Yes (Other)
  Sender: FDA-Public Use
  Company Number: None

PATIENT
  Age: 39 Year
  Sex: Female
  Weight: 72.1219 kg

DRUGS (2)
  1. LEVOTHYROXINE SODIUM [Suspect]
     Indication: HYPOTHYROIDISM
     Dosage: 1 TABLET DAILY PO
     Route: 048
     Dates: start: 20090120, end: 20090209
  2. SYNTHROID [Suspect]
     Indication: HYPOTHYROIDISM
     Dosage: 1 TABLET DAILY PO
     Route: 048
     Dates: start: 20080715, end: 20081015

REACTIONS (1)
  - WEIGHT INCREASED [None]
